FAERS Safety Report 16203940 (Version 3)
Quarter: 2020Q1

REPORT INFORMATION
  Report Type: Report from Study
  Country: BR (occurrence: BR)
  Receive Date: 20190416
  Receipt Date: 20200228
  Transmission Date: 20200409
  Serious: Yes (Hospitalization, Other)
  Sender: FDA-Public Use
  Company Number: BR-JNJFOC-20190129923

PATIENT
  Age: 39 Year
  Sex: Female
  Weight: 71 kg

DRUGS (6)
  1. PROLIVE [Concomitant]
     Dosage: 1 ENV
     Route: 065
     Dates: start: 20190123
  2. VELIJA [Concomitant]
     Active Substance: DULOXETINE HYDROCHLORIDE
     Route: 048
     Dates: start: 20181127
  3. STELARA [Suspect]
     Active Substance: USTEKINUMAB
     Indication: CROHN^S DISEASE
     Route: 058
     Dates: start: 20180515
  4. AZATHIOPRINE. [Concomitant]
     Active Substance: AZATHIOPRINE
     Route: 065
     Dates: start: 20181127
  5. AZATHIOPRINE. [Concomitant]
     Active Substance: AZATHIOPRINE
     Route: 048
     Dates: start: 20181127
  6. SULFASALAZINE. [Concomitant]
     Active Substance: SULFASALAZINE
     Route: 065

REACTIONS (9)
  - Pain [Unknown]
  - Product dose omission [Unknown]
  - Anal haemorrhage [Unknown]
  - Haematochezia [Unknown]
  - Hypersensitivity [Recovered/Resolved]
  - Anxiety [Not Recovered/Not Resolved]
  - Therapeutic response decreased [Recovering/Resolving]
  - Weight increased [Unknown]
  - Pneumonia [Recovered/Resolved]

NARRATIVE: CASE EVENT DATE: 201811
